FAERS Safety Report 10241121 (Version 1)
Quarter: 2014Q1

REPORT INFORMATION
  Report Type: Spontaneous
  Country: US (occurrence: None)
  Receive Date: 20140306
  Receipt Date: 20140306
  Transmission Date: 20141002
  Serious: Yes (Other)
  Sender: FDA-Public Use
  Company Number: 163-21880-13050895

PATIENT
  Age: 73 Year
  Sex: Male
  Weight: 73.9 kg

DRUGS (11)
  1. REVLIMID (LENALIDOMIDE) (15 MILLIGRAM, CAPSULES) [Suspect]
     Indication: PLASMA CELL MYELOMA
     Dosage: 15 MG, 21 IN 28 D, PO
     Route: 048
     Dates: start: 20130401, end: 20130419
  2. DEXAMETHASONE (DEXAMETHASONE) (4 MILLIGRAM, TABLETS) [Concomitant]
  3. METOPROLOL SUCCINATE (METOPROLOL SUCCINATE) (SUSTAINED-RELEASE TABLET) [Concomitant]
  4. RED BLOOD CELLS (RED BLOOD CELLS) (UNKNOWN) [Concomitant]
  5. FUROSEMIDE (FUROSEMIDE) (TABLETS) [Concomitant]
  6. CHLORTHALIDONE (CHLORTALIDONE) (TABLETS) [Concomitant]
  7. ASPIRINE (ACETYLSALICYLIC ACID) (CHEWABLE TABLET) [Concomitant]
  8. BIOFLEX (TABLETS) [Concomitant]
  9. VITAMIN D (ERGOCALCIFEROL) (TABLETS) [Concomitant]
  10. ENOXAPARIN (ENOXAPARIN) (UNKNOWN) [Concomitant]
  11. ZOMETA (ZOLEDRONIC ACID) (INJECTION FOR INFUSION) [Concomitant]

REACTIONS (6)
  - Anaemia [None]
  - Malaise [None]
  - Cough [None]
  - Nervousness [None]
  - Gout [None]
  - Eructation [None]
